FAERS Safety Report 8576964-1 (Version None)
Quarter: 2012Q3

REPORT INFORMATION
  Report Type: 
  Country: None (occurrence: None)
  Receive Date: 20120807
  Receipt Date: 20120723
  Transmission Date: 20120928
  Serious: Yes (Other)
  Sender: FDA-Public Use
  Company Number: US-ARROW-2012-13526

PATIENT
  Age: 26 Year
  Sex: Female

DRUGS (1)
  1. RISPERIDONE [Suspect]
     Indication: PSYCHOTIC DISORDER
     Dosage: UNK
     Route: 065

REACTIONS (1)
  - CONDITION AGGRAVATED [None]
